FAERS Safety Report 11160367 (Version 1)
Quarter: 2015Q2

REPORT INFORMATION
  Report Type: Spontaneous
  Country: US (occurrence: US)
  Receive Date: 20150604
  Receipt Date: 20150604
  Transmission Date: 20150821
  Serious: No
  Sender: FDA-Public Use
  Company Number: US-SA-2014SA053566

PATIENT
  Age: 63 Year
  Sex: Male

DRUGS (4)
  1. NOVOLOG [Concomitant]
     Active Substance: INSULIN ASPART
  2. HUMALOG [Concomitant]
     Active Substance: INSULIN LISPRO
  3. SOLOSTAR [Suspect]
     Active Substance: DEVICE
     Indication: DEVICE THERAPY
     Dates: start: 201311
  4. LANTUS SOLOSTAR [Suspect]
     Active Substance: INSULIN GLARGINE
     Indication: TYPE 2 DIABETES MELLITUS
     Dosage: DOSE:30 UNIT(S)
     Route: 065
     Dates: start: 201311

REACTIONS (3)
  - Blood glucose increased [Unknown]
  - Cold sweat [Unknown]
  - Blood glucose decreased [Unknown]

NARRATIVE: CASE EVENT DATE: 20140417
